FAERS Safety Report 8009885-3 (Version None)
Quarter: 2011Q4

REPORT INFORMATION
  Report Type: 
  Country: None (occurrence: None)
  Receive Date: 20111228
  Receipt Date: 20111214
  Transmission Date: 20120403
  Serious: Yes (Hospitalization, Other)
  Sender: FDA-Public Use
  Company Number: CA-JNJFOC-20111210195

PATIENT
  Age: 21 Year
  Sex: Female

DRUGS (1)
  1. REMICADE [Suspect]
     Indication: COLITIS ULCERATIVE
     Route: 042

REACTIONS (4)
  - INTESTINAL OPERATION [None]
  - WEIGHT DECREASED [None]
  - DRUG INEFFECTIVE [None]
  - HYPERSENSITIVITY [None]
